FAERS Safety Report 9395978 (Version 2)
Quarter: 2013Q4

REPORT INFORMATION
  Report Type: Spontaneous
  Country: DE (occurrence: None)
  Receive Date: 20130708
  Receipt Date: 20131211
  Transmission Date: 20140711
  Serious: Yes (Hospitalization)
  Sender: FDA-Public Use
  Company Number: SYM-2013-05541

PATIENT
  Age: 49 Year
  Sex: Male

DRUGS (11)
  1. 5-FU [Suspect]
     Indication: COLORECTAL CANCER METASTATIC
     Route: 040
     Dates: start: 20130416, end: 20130416
  2. AFLIBERCEPT [Suspect]
     Indication: COLORECTAL CANCER METASTATIC
     Dates: start: 20130416, end: 20130416
  3. IRINOTECAN [Suspect]
     Indication: COLORECTAL CANCER METASTATIC
     Dates: start: 20130416, end: 20130416
  4. LEUCOVORIN (FOLINIC ACID) (SOLUTION FOR INFUSION) (FOLINIC ACID) [Suspect]
     Indication: COLORECTAL CANCER METASTATIC
     Dates: start: 20130416, end: 20130416
  5. HEPARIN GROUP (HEPARIN GROUP) [Concomitant]
  6. MIRTAZAPINE (MIRTAZAPINE) (MIRTAZAPINE) [Concomitant]
  7. PANTOZOL (PANTOPRAZOLE SODIUM SESQUIHYDRATE0 (PANTOPRAZOLE SODIUM SESQUIHYDRATE) [Concomitant]
  8. LASIX (FUROSEMIDE) (FUROSEMIDE) [Concomitant]
  9. ACE INHIBITOR NOS (ACE INHIBITORS) (NULL) [Concomitant]
  10. ALLOPURINOL (ALLOPURINOL) (ALLOPURINOL) [Concomitant]
  11. SELEN (SODIUM SELENITE) (SODIUM SELENITE) [Concomitant]

REACTIONS (2)
  - Cough [None]
  - Chest pain [None]
